FAERS Safety Report 7341828-8 (Version None)
Quarter: 2011Q1

REPORT INFORMATION
  Report Type: 
  Country: None (occurrence: None)
  Receive Date: 20110309
  Receipt Date: 20110224
  Transmission Date: 20110831
  Serious: Yes (Other)
  Sender: FDA-Public Use
  Company Number: CA-ELI_LILLY_AND_COMPANY-CA201102006837

PATIENT
  Sex: Female

DRUGS (19)
  1. ZYPREXA [Suspect]
     Dosage: 7.5 MG, EACH EVENING
     Dates: start: 20000211, end: 20000425
  2. RISPERDONE [Concomitant]
     Dosage: 1.5 MG, 2/D
  3. LORAZEPAM [Concomitant]
     Dosage: 0.5 MG, AS NEEDED
     Route: 060
  4. ZYPREXA [Suspect]
     Dosage: 15 MG, EACH EVENING
     Dates: start: 20000426, end: 20000427
  5. ZYPREXA [Suspect]
     Dosage: 2.5 MG, EACH MORNING
     Dates: start: 20040419, end: 20080918
  6. ZYPREXA [Suspect]
     Dosage: 2.5 MG, 3/D
     Dates: start: 20080919, end: 20081212
  7. GABAPENTIN [Concomitant]
     Dosage: 1200 MG, 2/D
  8. CLONAZEPAM [Concomitant]
     Dosage: 0.25 MG, EACH EVENING
  9. BENZTROPINE MESYLATE [Concomitant]
     Dosage: 1 MG, 2/D
  10. ZOLOFT [Concomitant]
     Dosage: 100 MG, DAILY (1/D)
  11. ZYPREXA [Suspect]
     Dosage: 10 MG, EACH EVENING
     Dates: start: 19991105, end: 20000210
  12. ZYPREXA [Suspect]
     Dosage: 5 MG, EACH EVENING
     Dates: start: 20000503, end: 20000508
  13. ZYPREXA [Suspect]
     Dosage: 10 MG, EACH EVENING
     Dates: start: 20000428, end: 20000502
  14. ZYPREXA [Suspect]
     Dosage: 7.5 MG, EACH EVENING
     Dates: start: 20040419, end: 20080918
  15. LEVOTHYROXINE [Concomitant]
     Dosage: 125 UG, DAILY (1/D)
  16. DIVALPROEX SODIUM [Concomitant]
     Dosage: 100 MG, EACH EVENING
  17. ZYPREXA [Suspect]
     Dosage: 5 MG, EACH EVENING
     Dates: start: 20080919, end: 20081212
  18. SEROQUEL                                /SCH/ [Concomitant]
     Dosage: 200 MG, 2/D
  19. LITHIUM CARBONATE [Concomitant]
     Dosage: 600 MG, EACH EVENING

REACTIONS (4)
  - RENAL FAILURE [None]
  - HYPERTENSION [None]
  - DIABETES MELLITUS [None]
  - HYPERGLYCAEMIA [None]
